FAERS Safety Report 25757910 (Version 1)
Quarter: 2025Q3

REPORT INFORMATION
  Report Type: Spontaneous
  Country: CR (occurrence: CR)
  Receive Date: 20250903
  Receipt Date: 20250903
  Transmission Date: 20251020
  Serious: Yes (Hospitalization)
  Sender: NOVARTIS
  Company Number: CR-002147023-NVSC2025CR136315

PATIENT
  Sex: Male

DRUGS (3)
  1. SACUBITRIL\VALSARTAN [Suspect]
     Active Substance: SACUBITRIL\VALSARTAN
     Indication: Cardiac failure
     Route: 065
  2. SACUBITRIL\VALSARTAN [Suspect]
     Active Substance: SACUBITRIL\VALSARTAN
     Dosage: UNK, QD
     Route: 048
  3. SACUBITRIL\VALSARTAN [Suspect]
     Active Substance: SACUBITRIL\VALSARTAN
     Dosage: UNK, QD (HALF OF 50MG)
     Route: 048
     Dates: start: 20250820

REACTIONS (13)
  - Heart rate decreased [Unknown]
  - Cardiovascular disorder [Unknown]
  - Ventricular dysfunction [Unknown]
  - Haemorrhage [Recovering/Resolving]
  - Inappropriate schedule of product administration [Unknown]
  - Wrong technique in product usage process [Unknown]
  - Illness [Recovering/Resolving]
  - Gait disturbance [Unknown]
  - Agitation [Unknown]
  - Fatigue [Unknown]
  - Productive cough [Unknown]
  - Influenza [Unknown]
  - Feeling abnormal [Unknown]

NARRATIVE: CASE EVENT DATE: 20220101
